FAERS Safety Report 18574457 (Version 1)
Quarter: 2020Q4

REPORT INFORMATION
  Report Type: Spontaneous
  Country: US (occurrence: US)
  Receive Date: 20201202
  Receipt Date: 20201202
  Transmission Date: 20210114
  Serious: No
  Sender: FDA-Public Use
  Company Number: None

PATIENT
  Age: 37 Year
  Sex: Female
  Weight: 69.3 kg

DRUGS (5)
  1. ZOMITRIPTAN [Concomitant]
  2. PROMETHAZINE [Concomitant]
     Active Substance: PROMETHAZINE HYDROCHLORIDE
  3. EMGALITY [Suspect]
     Active Substance: GALCANEZUMAB-GNLM
     Indication: MIGRAINE
     Dosage: ?          OTHER FREQUENCY:ONCE A MONTH;OTHER ROUTE:INJECTION ON BUTT?
     Route: 058
     Dates: start: 20200302
  4. ALBUTEROL. [Concomitant]
     Active Substance: ALBUTEROL
  5. EXCEDRINE [Concomitant]

REACTIONS (1)
  - Weight increased [None]
